FAERS Safety Report 10855648 (Version 1)
Quarter: 2015Q1

REPORT INFORMATION
  Report Type: Spontaneous
  Country: US (occurrence: US)
  Receive Date: 20150223
  Receipt Date: 20150223
  Transmission Date: 20150721
  Serious: Yes (Death)
  Sender: FDA-Public Use
  Company Number: US-JAZZ-2015-US-002595

PATIENT
  Age: 54 Year
  Sex: Male

DRUGS (1)
  1. FAZACLO [Suspect]
     Active Substance: CLOZAPINE
     Dosage: 25-600 MG QD
     Dates: start: 20140210

REACTIONS (1)
  - Death [Fatal]

NARRATIVE: CASE EVENT DATE: 20150217
